FAERS Safety Report 8188195-8 (Version None)
Quarter: 2012Q1

REPORT INFORMATION
  Report Type: 
  Country: None (occurrence: None)
  Receive Date: 20120221
  Receipt Date: 20111109
  Transmission Date: 20120608
  Serious: Yes (Other)
  Sender: FDA-Public Use
  Company Number: PHEH2011US08374

PATIENT
  Age: 83 Year
  Sex: Female

DRUGS (2)
  1. AVASTIN [Concomitant]
  2. TOBI [Suspect]
     Dosage: 300 MG, QD

REACTIONS (5)
  - DEAFNESS [None]
  - DRUG INEFFECTIVE [None]
  - MACULAR DEGENERATION [None]
  - EAR DISORDER [None]
  - DIZZINESS [None]
